FAERS Safety Report 10160066 (Version 2)
Quarter: 2015Q1

REPORT INFORMATION
  Report Type: Spontaneous
  Country: US (occurrence: US)
  Receive Date: 20140508
  Receipt Date: 20150128
  Transmission Date: 20150720
  Serious: No
  Sender: FDA-Public Use
  Company Number: US-GLAXOSMITHKLINE-A1061398A

PATIENT
  Sex: Female

DRUGS (1)
  1. TYKERB [Suspect]
     Active Substance: LAPATINIB DITOSYLATE
     Indication: BREAST CANCER STAGE IV
     Dosage: 250 MG TABLETS UNKNOWN DOSING
     Route: 065
     Dates: start: 20060101

REACTIONS (2)
  - Drug dose omission [Unknown]
  - Wound [Unknown]
